FAERS Safety Report 17035566 (Version 1)
Quarter: 2019Q4

REPORT INFORMATION
  Report Type: Spontaneous
  Country: US (occurrence: US)
  Receive Date: 20191114
  Receipt Date: 20191114
  Transmission Date: 20200122
  Serious: Yes (Life-Threatening)
  Sender: FDA-Public Use
  Company Number: None

PATIENT
  Sex: Female

DRUGS (2)
  1. CYTOTEC [Suspect]
     Active Substance: MISOPROSTOL
     Dates: start: 20190902, end: 20190904
  2. CYTOTEC [Suspect]
     Active Substance: MISOPROSTOL

REACTIONS (7)
  - Arthralgia [None]
  - Chest discomfort [None]
  - Dyspnoea [None]
  - Weight decreased [None]
  - Chest pain [None]
  - Malaise [None]
  - Feeling hot [None]

NARRATIVE: CASE EVENT DATE: 20191114
